FAERS Safety Report 8968211 (Version 14)
Quarter: 2014Q4

REPORT INFORMATION
  Report Type: Report from Study
  Country: CA (occurrence: CA)
  Receive Date: 20121217
  Receipt Date: 20141208
  Transmission Date: 20150529
  Serious: Yes (Hospitalization, Other)
  Sender: FDA-Public Use
  Company Number: PHHY2012CA080227

PATIENT
  Age: 58 Year
  Sex: Female

DRUGS (2)
  1. SANDOSTATIN LAR DEPOT [Suspect]
     Active Substance: OCTREOTIDE ACETATE
     Indication: GASTRIC NEOPLASM
  2. SANDOSTATIN LAR DEPOT [Suspect]
     Active Substance: OCTREOTIDE ACETATE
     Indication: NEUROENDOCRINE TUMOUR
     Dosage: 30 MG, EVERY 4 WEEKS
     Route: 030
     Dates: start: 20120817

REACTIONS (15)
  - Poor quality sleep [Unknown]
  - Frequent bowel movements [Unknown]
  - Abdominal distension [Unknown]
  - Faeces soft [Unknown]
  - Gallbladder pain [Unknown]
  - Hepatomegaly [Unknown]
  - Gastrooesophageal reflux disease [Unknown]
  - Faeces discoloured [Unknown]
  - Vomiting [Unknown]
  - Blood pressure systolic increased [Unknown]
  - Intestinal obstruction [Unknown]
  - Gastrointestinal obstruction [Unknown]
  - Abdominal pain upper [Not Recovered/Not Resolved]
  - Blood pressure increased [Unknown]
  - Headache [Not Recovered/Not Resolved]

NARRATIVE: CASE EVENT DATE: 20140424
